FAERS Safety Report 7483940-9 (Version None)
Quarter: 2011Q2

REPORT INFORMATION
  Report Type: 
  Country: None (occurrence: None)
  Receive Date: 20110517
  Receipt Date: 20110513
  Transmission Date: 20111010
  Serious: Yes (Other)
  Sender: FDA-Public Use
  Company Number: JP-PFIZER INC-2011103799

PATIENT
  Age: 74 Year
  Sex: Male

DRUGS (1)
  1. LYRICA [Suspect]
     Dosage: 300MG DAILY
     Route: 048
     Dates: start: 20110314

REACTIONS (2)
  - SOMNOLENCE [None]
  - ROAD TRAFFIC ACCIDENT [None]
